FAERS Safety Report 14687886 (Version 1)
Quarter: 2018Q1

REPORT INFORMATION
  Report Type: Report from Study
  Country: US (occurrence: US)
  Receive Date: 20180328
  Receipt Date: 20180328
  Transmission Date: 20180509
  Serious: Yes (Other)
  Sender: FDA-Public Use
  Company Number: US-ROCHE-2098103

PATIENT
  Age: 15 Year
  Sex: Male
  Weight: 75 kg

DRUGS (5)
  1. NUTROPIN AQ [Suspect]
     Active Substance: SOMATROPIN
     Indication: GROWTH HORMONE DEFICIENCY
     Route: 058
  2. NUTROPIN AQ [Suspect]
     Active Substance: SOMATROPIN
     Route: 058
  3. VITAMIN D3 [Concomitant]
     Active Substance: CHOLECALCIFEROL
     Route: 048
  4. NUTROPIN AQ [Suspect]
     Active Substance: SOMATROPIN
     Indication: HYPOPITUITARISM
     Dosage: 0.168 MG/KG PER WEEK
     Route: 058
  5. NUTROPIN AQ [Suspect]
     Active Substance: SOMATROPIN
     Indication: BODY HEIGHT BELOW NORMAL
     Route: 058

REACTIONS (20)
  - Alanine aminotransferase increased [Unknown]
  - Tuberculosis [Unknown]
  - Hypothyroidism [Unknown]
  - Wrist fracture [Unknown]
  - Vitamin D deficiency [Recovered/Resolved]
  - Impaired fasting glucose [Recovering/Resolving]
  - Eosinophil count increased [Unknown]
  - Skin lesion [Unknown]
  - Ectopic posterior pituitary gland [Unknown]
  - Insulin-like growth factor increased [Unknown]
  - Blood alkaline phosphatase increased [Unknown]
  - Glycosylated haemoglobin increased [Recovered/Resolved]
  - Globulins decreased [Unknown]
  - Blood creatinine decreased [Unknown]
  - Fatigue [Unknown]
  - White blood cell count decreased [Unknown]
  - Blood creatine increased [Unknown]
  - Skin disorder [Unknown]
  - Blood urea increased [Unknown]
  - Growth retardation [Unknown]

NARRATIVE: CASE EVENT DATE: 2012
